FAERS Safety Report 6738057-5 (Version None)
Quarter: 2010Q2

REPORT INFORMATION
  Report Type: 
  Country: None (occurrence: None)
  Receive Date: 20100520
  Receipt Date: 20100504
  Transmission Date: 20101027
  Serious: Yes (Hospitalization, Other)
  Sender: FDA-Public Use
  Company Number: 2010SCPR000644

PATIENT
  Age: 34 Year
  Sex: Male

DRUGS (1)
  1. VALPROIC ACID [Suspect]
     Indication: PARTIAL SEIZURES
     Dosage: 25 MG/KG, QD; 16.5 MG/KG, QD

REACTIONS (8)
  - ASCITES [None]
  - DECREASED APPETITE [None]
  - DRUG LEVEL DECREASED [None]
  - IDIOSYNCRATIC DRUG REACTION [None]
  - LEUKOCYTOSIS [None]
  - PANCREATITIS ACUTE [None]
  - PLEURAL EFFUSION [None]
  - VOMITING [None]
